FAERS Safety Report 5583578-4 (Version None)
Quarter: 2007Q4

REPORT INFORMATION
  Report Type: 
  Country: None (occurrence: None)
  Receive Date: 20071231
  Receipt Date: 20071219
  Transmission Date: 20080405
  Serious: Yes (Other)
  Sender: FDA-Public Use
  Company Number: CHPA2007US13754

PATIENT
  Age: 61 Year
  Sex: Male

DRUGS (1)
  1. DEXTROMETHORPHAN HYDROBROMIDE [Suspect]
     Indication: COUGH
     Dosage: 1 TSP, TID-QID, ORAL
     Route: 048
     Dates: start: 20071209, end: 20071215

REACTIONS (1)
  - DRUG HYPERSENSITIVITY [None]
